FAERS Safety Report 7546875-9 (Version None)
Quarter: 2011Q2

REPORT INFORMATION
  Report Type: 
  Country: None (occurrence: None)
  Receive Date: 20110614
  Receipt Date: 20110607
  Transmission Date: 20111010
  Serious: Yes (Hospitalization)
  Sender: FDA-Public Use
  Company Number: CA-ALEXION-A201100775

PATIENT
  Sex: Female

DRUGS (6)
  1. SOLIRIS [Suspect]
     Indication: PAROXYSMAL NOCTURNAL HAEMOGLOBINURIA
     Dosage: 900 MG, Q2W
     Route: 042
     Dates: start: 20100618
  2. FOLIC ACID [Concomitant]
     Indication: PAROXYSMAL NOCTURNAL HAEMOGLOBINURIA
     Dosage: QD
     Route: 048
  3. POTASSIUM CHLORIDE [Concomitant]
     Dosage: UNK
  4. MAGNESIUM SULFATE [Concomitant]
     Dosage: UNK
  5. ASPIRIN [Concomitant]
     Indication: PROPHYLAXIS
     Dosage: QD
     Route: 048
  6. VITAMIN B-12 [Concomitant]
     Dosage: UNK

REACTIONS (1)
  - MENINGOCOCCAL SEPSIS [None]
